FAERS Safety Report 8555952-5 (Version None)
Quarter: 2012Q3

REPORT INFORMATION
  Report Type: 
  Country: None (occurrence: None)
  Receive Date: 20120801
  Receipt Date: 20120716
  Transmission Date: 20120928
  Serious: No
  Sender: FDA-Public Use
  Company Number: US-009507513-1207USA006259

PATIENT

DRUGS (1)
  1. IMPLANON [Suspect]
     Indication: CONTRACEPTION
     Dosage: 1 DF, UNK
     Route: 059
     Dates: start: 20101001

REACTIONS (9)
  - ARTHRALGIA [None]
  - DIARRHOEA [None]
  - PALPITATIONS [None]
  - PETECHIAE [None]
  - APPLICATION SITE SWELLING [None]
  - HEADACHE [None]
  - APPLICATION SITE ERYTHEMA [None]
  - VISION BLURRED [None]
  - CAMPBELL DE MORGAN SPOTS [None]
